FAERS Safety Report 11776859 (Version 1)
Quarter: 2015Q4

REPORT INFORMATION
  Report Type: Spontaneous
  Country: US (occurrence: None)
  Receive Date: 20151124
  Receipt Date: 20151124
  Transmission Date: 20160304
  Serious: No
  Sender: FDA-Public Use
  Company Number: None

PATIENT
  Age: 42 Year
  Sex: Male
  Weight: 70.31 kg

DRUGS (2)
  1. METHAMPHETAMINE [Suspect]
     Active Substance: METHAMPHETAMINE
  2. BLACK MAMBA (CFSAN) [Suspect]
     Active Substance: DIETARY SUPPLEMENT

REACTIONS (2)
  - Adverse reaction [None]
  - Intentional product use issue [None]
